FAERS Safety Report 4610333-1 (Version None)
Quarter: 2005Q1

REPORT INFORMATION
  Report Type: 
  Country: None (occurrence: None)
  Receive Date: 20050314
  Receipt Date: 20050301
  Transmission Date: 20050727
  Serious: Yes (Death, Hospitalization)
  Sender: FDA-Public Use
  Company Number: 200418768BWH

PATIENT
  Age: 57 Year
  Sex: Male
  Weight: 99.1 kg

DRUGS (5)
  1. DTIC-DOME [Suspect]
     Indication: METASTATIC MALIGNANT MELANOMA
     Dosage: 1000 MG/M2, TOTAL DAILY, INTRAVENOUS
     Route: 042
     Dates: start: 20040503
  2. ATENOLOL [Concomitant]
  3. KYTRIL [Concomitant]
  4. DEXAMETHASONE [Concomitant]
  5. ZOFRAN [Concomitant]

REACTIONS (7)
  - ACTIVATED PARTIAL THROMBOPLASTIN TIME PROLONGED [None]
  - DISEASE PROGRESSION [None]
  - FIBRIN D DIMER INCREASED [None]
  - HYPERCOAGULATION [None]
  - HYPOXIA [None]
  - METASTATIC MALIGNANT MELANOMA [None]
  - PULMONARY EMBOLISM [None]
